FAERS Safety Report 22369477 (Version 1)
Quarter: 2023Q2

REPORT INFORMATION
  Report Type: Report from Study
  Country: US (occurrence: US)
  Receive Date: 20230526
  Receipt Date: 20230526
  Transmission Date: 20230721
  Serious: Yes (Death, Other)
  Sender: FDA-Public Use
  Company Number: US-ACADIA PHARMACEUTICALS INC.-ACA-2023-PIM-001937

PATIENT
  Age: 78 Year
  Sex: Male

DRUGS (11)
  1. NUPLAZID [Suspect]
     Active Substance: PIMAVANSERIN TARTRATE
     Indication: Parkinson^s disease psychosis
     Dosage: 34 MILLIGRAM, QD
     Route: 048
     Dates: start: 202203
  2. ELIQUIS [Concomitant]
     Active Substance: APIXABAN
  3. QUETIAPINE [Concomitant]
     Active Substance: QUETIAPINE
  4. DONEPEZIL [Concomitant]
     Active Substance: DONEPEZIL
  5. ESCITALOPRAM [Concomitant]
     Active Substance: ESCITALOPRAM OXALATE
  6. MINERALS\VITAMINS [Concomitant]
     Active Substance: MINERALS\VITAMINS
  7. METOPROLOL [Concomitant]
     Active Substance: METOPROLOL
  8. CARBIDOPA [Concomitant]
     Active Substance: CARBIDOPA
  9. HORIZANT [Concomitant]
     Active Substance: GABAPENTIN ENACARBIL
  10. VITAMINS NOS [Concomitant]
     Active Substance: VITAMINS
  11. CARBIDOPA\LEVODOPA [Concomitant]
     Active Substance: CARBIDOPA\LEVODOPA

REACTIONS (2)
  - Death [Fatal]
  - Terminal state [Unknown]

NARRATIVE: CASE EVENT DATE: 20230520
